FAERS Safety Report 5298961-4 (Version None)
Quarter: 2007Q2

REPORT INFORMATION
  Report Type: 
  Country: None (occurrence: None)
  Receive Date: 20070412
  Receipt Date: 20070412
  Transmission Date: 20071010
  Serious: Yes (Disabling, Other)
  Sender: FDA-Public Use
  Company Number: None

PATIENT
  Sex: Male
  Weight: 78.9259 kg

DRUGS (4)
  1. LEVAQUIN [Suspect]
     Indication: SINUSITIS
     Dosage: 750 MG 1 DAILY PO
     Route: 048
     Dates: start: 20060628, end: 20060718
  2. AVELOX [Concomitant]
  3. FLUROQUINOLONE [Concomitant]
  4. STEROID INJECTION [Concomitant]

REACTIONS (9)
  - ARTHRALGIA [None]
  - BACK PAIN [None]
  - HEADACHE [None]
  - INGUINAL HERNIA [None]
  - MUSCULOSKELETAL PAIN [None]
  - NECK PAIN [None]
  - NO THERAPEUTIC RESPONSE [None]
  - PAIN [None]
  - ROTATOR CUFF SYNDROME [None]
